FAERS Safety Report 10143077 (Version 1)
Quarter: 2014Q2

REPORT INFORMATION
  Report Type: Spontaneous
  Country: US (occurrence: None)
  Receive Date: 20140429
  Receipt Date: 20140429
  Transmission Date: 20141212
  Serious: Yes (Disabling)
  Sender: FDA-Public Use
  Company Number: None

PATIENT
  Age: 47 Year
  Sex: Female
  Weight: 93.9 kg

DRUGS (1)
  1. STELARA 45MG [Suspect]
     Indication: PSORIATIC ARTHROPATHY
     Dosage: 1 INJECTION, 0,1 MONTH; GIVEN INTO/UNDER THE SKIN
     Dates: start: 20140203, end: 20140303

REACTIONS (7)
  - Oedema [None]
  - Arthralgia [None]
  - Macular oedema [None]
  - Psoriatic arthropathy [None]
  - Skin lesion [None]
  - Condition aggravated [None]
  - Osteonecrosis [None]
